FAERS Safety Report 5212059-2 (Version None)
Quarter: 2007Q1

REPORT INFORMATION
  Report Type: 
  Country: None (occurrence: None)
  Receive Date: 20070118
  Receipt Date: 20070109
  Transmission Date: 20070707
  Serious: Yes (Hospitalization)
  Sender: FDA-Public Use
  Company Number: PHHO2007FR00829

PATIENT
  Age: 67 Year
  Sex: Male
  Weight: 61.7 kg

DRUGS (4)
  1. NO TREATMENT RECEIVED NOMED [Suspect]
     Indication: RENAL TRANSPLANT
  2. MYFORTIC [Concomitant]
     Indication: RENAL TRANSPLANT
     Dosage: 1440 MG / DAY
     Route: 048
     Dates: start: 20061019, end: 20061025
  3. CORTANCYL [Concomitant]
  4. NEORAL [Suspect]
     Indication: RENAL TRANSPLANT
     Dosage: UNK, UNK

REACTIONS (3)
  - GRAFT THROMBOSIS [None]
  - REMOVAL OF RENAL TRANSPLANT [None]
  - TRANSPLANT REJECTION [None]
